FAERS Safety Report 11931247 (Version 1)
Quarter: 2016Q1

REPORT INFORMATION
  Report Type: Spontaneous
  Country: US (occurrence: US)
  Receive Date: 20160120
  Receipt Date: 20160120
  Transmission Date: 20160526
  Serious: No
  Sender: FDA-Public Use
  Company Number: US-INCYTE CORPORATION-2015IN004964

PATIENT
  Sex: Male

DRUGS (1)
  1. JAKAFI [Suspect]
     Active Substance: RUXOLITINIB
     Dosage: 25 MG, QD
     Route: 048
     Dates: start: 20150429

REACTIONS (3)
  - Pain [Unknown]
  - Erythema [Unknown]
  - Swelling [Unknown]

NARRATIVE: CASE EVENT DATE: 2015
